FAERS Safety Report 18080066 (Version 2)
Quarter: 2020Q3

REPORT INFORMATION
  Report Type: Report from Study
  Country: CN (occurrence: CN)
  Receive Date: 20200728
  Receipt Date: 20200805
  Transmission Date: 20201103
  Serious: Yes (Hospitalization)
  Sender: FDA-Public Use
  Company Number: CN-PFIZER INC-2020273410

PATIENT
  Age: 29 Year
  Sex: Male
  Weight: 61 kg

DRUGS (3)
  1. GLASDEGIB [Suspect]
     Active Substance: GLASDEGIB
     Indication: ACUTE MYELOID LEUKAEMIA
     Dosage: QD FOR 5 CYCLES
     Route: 048
     Dates: start: 20191106, end: 20200717
  2. DAUNORUBICIN [Suspect]
     Active Substance: DAUNORUBICIN
     Indication: ACUTE MYELOID LEUKAEMIA
     Dosage: 60 MG/M2, QD FOR THREE DAYS
     Route: 041
     Dates: start: 20191106, end: 20191106
  3. CYTARABINE. [Suspect]
     Active Substance: CYTARABINE
     Indication: ACUTE MYELOID LEUKAEMIA
     Dosage: 100 MG/M2, QD FOR SEVEN DAYS FOR 3 CYCLE ON
     Route: 041
     Dates: start: 20191106, end: 20200111

REACTIONS (1)
  - Blood bilirubin increased [Not Recovered/Not Resolved]

NARRATIVE: CASE EVENT DATE: 20200716
